FAERS Safety Report 7967926-3 (Version None)
Quarter: 2011Q4

REPORT INFORMATION
  Report Type: 
  Country: None (occurrence: None)
  Receive Date: 20111209
  Receipt Date: 20111201
  Transmission Date: 20120403
  Serious: Yes (Hospitalization)
  Sender: FDA-Public Use
  Company Number: CH-SANOFI-AVENTIS-2011SA079424

PATIENT
  Age: 76 Year
  Sex: Female

DRUGS (14)
  1. CELEBREX [Suspect]
     Route: 048
     Dates: end: 20110505
  2. SINTROM [Suspect]
     Route: 048
     Dates: end: 20110505
  3. PREDNISONE [Suspect]
     Route: 048
  4. CITALOPRAM HYDROBROMIDE [Suspect]
     Route: 048
  5. ATROVENT [Concomitant]
  6. ENALAPRIL MALEATE AND HYDROCHLOROTHIAZIDE [Concomitant]
  7. PLAVIX [Suspect]
     Route: 048
  8. PRAVASTATIN SODIUM [Concomitant]
  9. PULMICORT [Concomitant]
  10. LORAMET [Concomitant]
  11. ZYPREXA [Concomitant]
  12. VENTOLIN [Concomitant]
  13. PANTOPRAZOLE SODIUM [Concomitant]
  14. TRAZODONE HCL [Concomitant]

REACTIONS (6)
  - CARDIAC FAILURE [None]
  - RENAL FAILURE ACUTE [None]
  - ANAEMIA [None]
  - DRUG INTERACTION [None]
  - GASTROINTESTINAL HAEMORRHAGE [None]
  - DYSPNOEA [None]
